FAERS Safety Report 5745433-6 (Version None)
Quarter: 2008Q2

REPORT INFORMATION
  Report Type: 
  Country: None (occurrence: None)
  Receive Date: 20080521
  Receipt Date: 20080513
  Transmission Date: 20081010
  Serious: Yes (Hospitalization, Other)
  Sender: FDA-Public Use
  Company Number: FR-ABBOTT-07P-056-0377739-00

PATIENT
  Sex: Male

DRUGS (4)
  1. DEPAKOTE [Suspect]
     Indication: HYPOMANIA
     Route: 048
     Dates: start: 20070227
  2. DEPAKOTE [Suspect]
     Indication: BIPOLAR DISORDER
     Route: 048
     Dates: start: 20070101, end: 20070515
  3. DEPAKOTE [Suspect]
     Indication: AFFECTIVE DISORDER
     Route: 048
     Dates: start: 20070525, end: 20070719
  4. DEPAKOTE [Suspect]
     Indication: BIPOLAR I DISORDER

REACTIONS (8)
  - ALCOHOLISM [None]
  - BALANCE DISORDER [None]
  - DEAFNESS UNILATERAL [None]
  - DISCOMFORT [None]
  - DRUG DOSE OMISSION [None]
  - SENSORY DISTURBANCE [None]
  - TINNITUS [None]
  - VERTIGO [None]
